FAERS Safety Report 6597821-6 (Version None)
Quarter: 2010Q1

REPORT INFORMATION
  Report Type: 
  Country: None (occurrence: None)
  Receive Date: 20100216
  Receipt Date: 20100204
  Transmission Date: 20100710
  Serious: Yes (Hospitalization)
  Sender: FDA-Public Use
  Company Number: 94938

PATIENT
  Age: 50 Year
  Sex: Female

DRUGS (2)
  1. KETAMINE HCL [Suspect]
     Indication: ABDOMINAL PAIN
     Dosage: 50MG FOUR TIMES DAY, 200MG FIVE TIMES A DAY
  2. KETAMINE HCL [Suspect]
     Indication: PERINEAL PAIN
     Dosage: 50MG FOUR TIMES DAY, 200MG FIVE TIMES A DAY

REACTIONS (1)
  - CYSTITIS [None]
